FAERS Safety Report 7942143-1 (Version None)
Quarter: 2011Q4

REPORT INFORMATION
  Report Type: 
  Country: None (occurrence: None)
  Receive Date: 20111123
  Receipt Date: 20111123
  Transmission Date: 20120403
  Serious: Yes (Hospitalization, Disabling)
  Sender: FDA-Public Use
  Company Number: None

PATIENT
  Sex: Female
  Weight: 61.2356 kg

DRUGS (1)
  1. CIPROFLOXACIN [Suspect]
     Indication: URINARY TRACT INFECTION
     Dosage: 2 500 MG STOPED AFTER 2
     Dates: start: 20110524

REACTIONS (13)
  - MUSCULAR WEAKNESS [None]
  - PAIN IN EXTREMITY [None]
  - FAECES DISCOLOURED [None]
  - RENAL CYST [None]
  - BURNING SENSATION [None]
  - ARTHRALGIA [None]
  - EAR PAIN [None]
  - INSOMNIA [None]
  - APHAGIA [None]
  - DIZZINESS [None]
  - DYSPNOEA [None]
  - OTORRHOEA [None]
  - ARTHROPATHY [None]
